FAERS Safety Report 6234641-6 (Version None)
Quarter: 2009Q2

REPORT INFORMATION
  Report Type: 
  Country: None (occurrence: None)
  Receive Date: 20090616
  Receipt Date: 20090616
  Transmission Date: 20091009
  Serious: Yes (Life-Threatening, Disabling)
  Sender: FDA-Public Use
  Company Number: None

PATIENT
  Sex: Female
  Weight: 27.9 kg

DRUGS (1)
  1. EZN-2285 -SC-PEG-L-ASPARAGI 750 IU/ML -3750 IU/5 ML VIAL- ENZON [Suspect]
     Indication: ACUTE LYMPHOCYTIC LEUKAEMIA
     Dosage: 2625 IU ONCE IV MINUTES
     Route: 042
     Dates: start: 20090609, end: 20090609

REACTIONS (3)
  - RESPIRATORY DISTRESS [None]
  - SWELLING FACE [None]
  - VOMITING [None]
